FAERS Safety Report 18399212 (Version 3)
Quarter: 2020Q4

REPORT INFORMATION
  Report Type: Spontaneous
  Country: US (occurrence: US)
  Receive Date: 20201019
  Receipt Date: 20201112
  Transmission Date: 20210114
  Serious: No
  Sender: FDA-Public Use
  Company Number: US-009507513-2010USA006245

PATIENT
  Age: 31 Year
  Sex: Female
  Weight: 97.97 kg

DRUGS (1)
  1. NEXPLANON [Suspect]
     Active Substance: ETONOGESTREL
     Dosage: 1 ROD EVERY 3 YEARS, LEFT ARM
     Route: 059
     Dates: start: 20200225, end: 20201015

REACTIONS (8)
  - Weight increased [Unknown]
  - Amenorrhoea [Unknown]
  - Device breakage [Recovered/Resolved]
  - Therapeutic response unexpected [Unknown]
  - Paraesthesia [Recovered/Resolved]
  - Weight decreased [Unknown]
  - Complication of device removal [Recovered/Resolved]
  - Paraesthesia [Recovered/Resolved]

NARRATIVE: CASE EVENT DATE: 2020
